FAERS Safety Report 21471923 (Version 2)
Quarter: 2022Q4

REPORT INFORMATION
  Report Type: Spontaneous
  Country: PR (occurrence: PR)
  Receive Date: 20221018
  Receipt Date: 20221220
  Transmission Date: 20230113
  Serious: Yes (Disabling)
  Sender: FDA-Public Use
  Company Number: PR-PFIZER INC-202201230366

PATIENT
  Age: 68 Year
  Sex: Female
  Weight: 58.06 kg

DRUGS (3)
  1. INLYTA [Suspect]
     Active Substance: AXITINIB
     Indication: Renal cancer
     Dosage: 5 MG, 2X/DAY
     Route: 048
     Dates: start: 20220809, end: 20220929
  2. INLYTA [Suspect]
     Active Substance: AXITINIB
     Dosage: PATIENT CONSUMED ALL 6 TABLETS AT ONCE ON 1ST DAY OF TREATMENT
  3. KEYTRUDA [Concomitant]
     Active Substance: PEMBROLIZUMAB
     Indication: Renal cancer
     Dosage: 200 MG, EVERY 3 WEEKS
     Route: 042
     Dates: start: 20220809

REACTIONS (2)
  - Dysphonia [Not Recovered/Not Resolved]
  - Overdose [Unknown]

NARRATIVE: CASE EVENT DATE: 20220929
